FAERS Safety Report 12696436 (Version 2)
Quarter: 2016Q3

REPORT INFORMATION
  Report Type: Report from Study
  Country: US (occurrence: US)
  Receive Date: 20160830
  Receipt Date: 20160905
  Transmission Date: 20161109
  Serious: Yes (Hospitalization, Other)
  Sender: FDA-Public Use
  Company Number: US-HORIZON-HPN-100-014-0032-2016

PATIENT
  Age: 22 Year
  Sex: Female

DRUGS (2)
  1. SODIUM PHENYLBUTYRATE. [Suspect]
     Active Substance: SODIUM PHENYLBUTYRATE
     Indication: UREA CYCLE ENZYME DEFICIENCY
     Dosage: 6.2 G
     Dates: start: 2006
  2. CYCLINEX-2 [Concomitant]
     Indication: UREA CYCLE ENZYME DEFICIENCY
     Dosage: 140 G DAILY
     Dates: start: 20140729

REACTIONS (1)
  - Hyperammonaemic crisis [Recovered/Resolved]

NARRATIVE: CASE EVENT DATE: 20160823
